FAERS Safety Report 4900001-0 (Version None)
Quarter: 2006Q1

REPORT INFORMATION
  Report Type: 
  Country: None (occurrence: None)
  Receive Date: 20060203
  Receipt Date: 20060127
  Transmission Date: 20060701
  Serious: Yes (Other)
  Sender: FDA-Public Use
  Company Number: PHBS2006KR01567

PATIENT
  Age: 36 Year
  Sex: Male

DRUGS (1)
  1. FAMCICLOVIR [Suspect]
     Indication: HERPES ZOSTER
     Route: 048

REACTIONS (5)
  - BIOPSY SKIN ABNORMAL [None]
  - ERYTHEMA ANNULARE [None]
  - LYMPHOCYTIC INFILTRATION [None]
  - RASH PAPULAR [None]
  - SKIN OEDEMA [None]
